FAERS Safety Report 19260717 (Version 1)
Quarter: 2021Q2

REPORT INFORMATION
  Report Type: Spontaneous
  Country: PT (occurrence: PT)
  Receive Date: 20210514
  Receipt Date: 20210514
  Transmission Date: 20210717
  Serious: Yes (Hospitalization, Other)
  Sender: FDA-Public Use
  Company Number: PT-ALXN-A202105463

PATIENT
  Age: 38 Year
  Sex: Female

DRUGS (3)
  1. SOLIRIS [Suspect]
     Active Substance: ECULIZUMAB
     Indication: ATYPICAL HAEMOLYTIC URAEMIC SYNDROME
  2. SOLIRIS [Suspect]
     Active Substance: ECULIZUMAB
     Indication: END STAGE RENAL DISEASE
     Route: 065
  3. SOLIRIS [Suspect]
     Active Substance: ECULIZUMAB
     Indication: RENAL TRANSPLANT

REACTIONS (10)
  - Thrombosis [Unknown]
  - Transplant dysfunction [Unknown]
  - C-reactive protein increased [Unknown]
  - Leukopenia [Unknown]
  - Diarrhoea [Recovered/Resolved]
  - Nephritis bacterial [Unknown]
  - Escherichia infection [Unknown]
  - Off label use [Unknown]
  - Pyrexia [Recovered/Resolved]
  - Nausea [Recovered/Resolved]
